FAERS Safety Report 5569136-6 (Version None)
Quarter: 2007Q4

REPORT INFORMATION
  Report Type: 
  Country: None (occurrence: None)
  Receive Date: 20071220
  Receipt Date: 20070730
  Transmission Date: 20080405
  Serious: No
  Sender: FDA-Public Use
  Company Number: A0666908A

PATIENT
  Age: 65 Year
  Sex: Male

DRUGS (7)
  1. AVODART [Suspect]
     Indication: BENIGN PROSTATIC HYPERPLASIA
     Dosage: .5MG PER DAY
     Route: 048
     Dates: start: 20070501
  2. UROXATRAL [Concomitant]
  3. OMEPRAZOLE [Concomitant]
  4. MERCAPTOPURINE [Concomitant]
  5. GLIPIZIDE [Concomitant]
  6. DIOVAN [Concomitant]
  7. SIMVASTATIN [Concomitant]

REACTIONS (1)
  - BREAST ENLARGEMENT [None]
